FAERS Safety Report 12118891 (Version 1)
Quarter: 2016Q1

REPORT INFORMATION
  Report Type: Spontaneous
  Country: US (occurrence: None)
  Receive Date: 20160225
  Receipt Date: 20160225
  Transmission Date: 20160526
  Serious: Yes (Disabling)
  Sender: FDA-Public Use
  Company Number: None

PATIENT
  Age: 57 Year
  Sex: Female
  Weight: 113.4 kg

DRUGS (4)
  1. TYLENOL [Concomitant]
     Active Substance: ACETAMINOPHEN
  2. IBUPROFEN. [Concomitant]
     Active Substance: IBUPROFEN
  3. ALEVE [Concomitant]
     Active Substance: NAPROXEN SODIUM
  4. LEVAQUIN [Suspect]
     Active Substance: LEVOFLOXACIN
     Indication: EAR INFECTION
     Dosage: LEVOFLOXACIN, ONCE DAILY, TAKEN BY MOUTH
     Route: 048
     Dates: start: 20150107, end: 20150110

REACTIONS (5)
  - Pain [None]
  - Tendonitis [None]
  - Impaired work ability [None]
  - Gastrointestinal haemorrhage [None]
  - Abasia [None]

NARRATIVE: CASE EVENT DATE: 20160110
